FAERS Safety Report 5425184-8 (Version None)
Quarter: 2007Q3

REPORT INFORMATION
  Report Type: 
  Country: None (occurrence: None)
  Receive Date: 20070824
  Receipt Date: 20070815
  Transmission Date: 20080115
  Serious: Yes (Other)
  Sender: FDA-Public Use
  Company Number: JP-ROCHE-492303

PATIENT
  Age: 13 Year
  Sex: Female

DRUGS (5)
  1. TAMIFLU [Suspect]
     Route: 048
     Dates: start: 20070317, end: 20070318
  2. TAMIFLU [Suspect]
     Route: 048
     Dates: start: 20070319
  3. NAUZELIN [Suspect]
     Indication: NAUSEA
     Route: 048
     Dates: start: 20070317, end: 20070319
  4. MIYA BM [Suspect]
     Indication: ABDOMINAL PAIN
     Route: 048
     Dates: start: 20070317, end: 20070319
  5. POLARAMINE [Suspect]
     Indication: RHINORRHOEA
     Route: 048
     Dates: start: 20070317, end: 20070319

REACTIONS (2)
  - ABNORMAL BEHAVIOUR [None]
  - GRAND MAL CONVULSION [None]
